FAERS Safety Report 8635562 (Version 2)
Quarter: 2013Q4

REPORT INFORMATION
  Report Type: Report from Study
  Country: CA (occurrence: CA)
  Receive Date: 20120626
  Receipt Date: 20131010
  Transmission Date: 20140711
  Serious: Yes (Hospitalization)
  Sender: FDA-Public Use
  Company Number: CA-ROCHE-1081090

PATIENT
  Age: 76 Year
  Sex: Female
  Weight: 49.94 kg

DRUGS (5)
  1. ACTEMRA [Suspect]
     Indication: RHEUMATOID ARTHRITIS
     Route: 042
     Dates: start: 20110512
  2. DICLOFENAC [Concomitant]
  3. TRAMADOL [Concomitant]
  4. ASA [Concomitant]
  5. DICLOFENAC GEL [Concomitant]
     Route: 065

REACTIONS (4)
  - Fall [Unknown]
  - Hip fracture [Not Recovered/Not Resolved]
  - Pain in extremity [Not Recovered/Not Resolved]
  - Neck pain [Not Recovered/Not Resolved]
